FAERS Safety Report 19749796 (Version 1)
Quarter: 2021Q3

REPORT INFORMATION
  Report Type: Spontaneous
  Country: US (occurrence: US)
  Receive Date: 20210826
  Receipt Date: 20210826
  Transmission Date: 20211014
  Serious: No
  Sender: FDA-Public Use
  Company Number: US-SLATE RUN PHARMACEUTICALS-21US000641

PATIENT

DRUGS (4)
  1. BUPROPION HYDROCHLORIDE EXTENDED RELEASE TABLETS USP (SR) [Suspect]
     Active Substance: BUPROPION HYDROCHLORIDE
     Dosage: HIGHER DOSES, QD
     Route: 048
  2. BUPROPION HYDROCHLORIDE EXTENDED RELEASE TABLETS USP (SR) [Suspect]
     Active Substance: BUPROPION HYDROCHLORIDE
     Indication: DEPRESSION
     Dosage: 150 MILLIGRAM, QD
     Route: 048
     Dates: end: 202108
  3. BUPROPION HYDROCHLORIDE EXTENDED RELEASE TABLETS USP (SR) [Suspect]
     Active Substance: BUPROPION HYDROCHLORIDE
     Dosage: 150 MILLIGRAM, QD
     Route: 048
  4. ZOLOFT [Concomitant]
     Active Substance: SERTRALINE HYDROCHLORIDE
     Indication: DEPRESSION
     Dosage: 50 MILLIGRAM

REACTIONS (1)
  - Vision blurred [Not Recovered/Not Resolved]
